FAERS Safety Report 6445119-9 (Version None)
Quarter: 2009Q4

REPORT INFORMATION
  Report Type: 
  Country: None (occurrence: None)
  Receive Date: 20091110
  Receipt Date: 20090820
  Transmission Date: 20100525
  Serious: No
  Sender: FDA-Public Use
  Company Number: 1000008346

PATIENT
  Age: 57 Year
  Sex: Female

DRUGS (22)
  1. SAVELLA [Suspect]
     Indication: MYOFASCIAL PAIN SYNDROME
     Dosage: 12.5 MG (12.5 MG, 1 IN 1 D), ORAL : 25 MG (12.5 MG, 2 IN 1 D), ORAL : 50 MG (25 MG, 2 IN 1 D), ORAL
     Route: 048
     Dates: start: 20090725, end: 20090725
  2. SAVELLA [Suspect]
     Indication: MYOFASCIAL PAIN SYNDROME
     Dosage: 12.5 MG (12.5 MG, 1 IN 1 D), ORAL : 25 MG (12.5 MG, 2 IN 1 D), ORAL : 50 MG (25 MG, 2 IN 1 D), ORAL
     Route: 048
     Dates: start: 20090726, end: 20090727
  3. SAVELLA [Suspect]
     Indication: MYOFASCIAL PAIN SYNDROME
     Dosage: 12.5 MG (12.5 MG, 1 IN 1 D), ORAL : 25 MG (12.5 MG, 2 IN 1 D), ORAL : 50 MG (25 MG, 2 IN 1 D), ORAL
     Route: 048
     Dates: start: 20090728, end: 20090731
  4. SAVELLA [Suspect]
     Indication: MYOFASCIAL PAIN SYNDROME
     Dosage: 100 MG (50 MG, 2 IN 1 D), ORAL
     Route: 048
     Dates: start: 20090801, end: 20090813
  5. OXYCONTIN [Concomitant]
  6. OXYCODONE HCL [Concomitant]
  7. THYROID TAB [Concomitant]
  8. DHEA [Concomitant]
  9. COZAAR [Concomitant]
  10. WELLBUTRIN [Concomitant]
  11. PROZAC [Concomitant]
  12. NEXIUM [Concomitant]
  13. NAPRELAN [Concomitant]
  14. ESTRADIOL [Concomitant]
  15. PROMETRIUM [Concomitant]
  16. KLONOPIN [Concomitant]
  17. NAMENDA [Concomitant]
  18. PROVIGIL [Concomitant]
  19. PLAQUENIL [Concomitant]
  20. TRENTAL [Concomitant]
  21. NIFEDIPINE [Concomitant]
  22. CELLCEPT [Concomitant]

REACTIONS (5)
  - ABDOMINAL PAIN UPPER [None]
  - BLOOD CREATININE INCREASED [None]
  - BLOOD SODIUM DECREASED [None]
  - MYALGIA [None]
  - WEIGHT DECREASED [None]
